FAERS Safety Report 5068874-1 (Version None)
Quarter: 2006Q3

REPORT INFORMATION
  Report Type: 
  Country: None (occurrence: None)
  Receive Date: 20060802
  Receipt Date: 20060516
  Transmission Date: 20061208
  Serious: No
  Sender: FDA-Public Use
  Company Number: US-BRISTOL-MYERS SQUIBB COMPANY-13379185

PATIENT
  Age: 72 Year
  Sex: Male
  Weight: 61 kg

DRUGS (4)
  1. COUMADIN [Suspect]
     Indication: VASCULAR BYPASS GRAFT
     Dosage: INCREASED TO 1 MG DAILY FOR 5 DAYS AND 1 MG (1 AND 1/2 TABLET) DAILY ON MONDAYS AND FRIDAYS
     Dates: start: 20040301
  2. TOPROL-XL [Concomitant]
  3. DIOVAN HCT [Concomitant]
  4. LIPITOR [Concomitant]

REACTIONS (2)
  - INTERNATIONAL NORMALISED RATIO DECREASED [None]
  - PRURITUS [None]
